FAERS Safety Report 24674682 (Version 1)
Quarter: 2024Q4

REPORT INFORMATION
  Report Type: Spontaneous
  Country: FR (occurrence: FR)
  Receive Date: 20241128
  Receipt Date: 20241128
  Transmission Date: 20250115
  Serious: Yes (Hospitalization)
  Sender: SANDOZ
  Company Number: None

PATIENT
  Age: 48 Year
  Sex: Female

DRUGS (9)
  1. MORPHINE SULFATE [Suspect]
     Active Substance: MORPHINE SULFATE
     Indication: Product used for unknown indication
     Dosage: 5MG ? LA DEMANDE
     Route: 048
     Dates: start: 2023, end: 2024
  2. FENTANYL [Suspect]
     Active Substance: FENTANYL
     Dosage: 25.000UG QD
     Route: 062
     Dates: start: 20240719, end: 202409
  3. FENTANYL [Suspect]
     Active Substance: FENTANYL
     Indication: Product used for unknown indication
     Dosage: 50.000UG QD
     Route: 062
     Dates: start: 2024, end: 20240719
  4. OXYCODONE HYDROCHLORIDE [Suspect]
     Active Substance: OXYCODONE HYDROCHLORIDE
     Indication: Product used for unknown indication
     Dosage: UNK
     Route: 065
     Dates: start: 2023, end: 20240719
  5. TRAMADOL HYDROCHLORIDE [Suspect]
     Active Substance: TRAMADOL HYDROCHLORIDE
     Dosage: LP 200MG  MATIN ET SOIR
     Route: 048
     Dates: start: 2024
  6. TRAMADOL HYDROCHLORIDE [Suspect]
     Active Substance: TRAMADOL HYDROCHLORIDE
     Dosage: 150MG EN COMPRIM? MATIN ET SOIR + 50MG EN EFFERVESCENT ? LA DEMANDE MAX 4 FOIS/J
     Route: 048
     Dates: start: 2023, end: 2024
  7. TRAMADOL HYDROCHLORIDE [Suspect]
     Active Substance: TRAMADOL HYDROCHLORIDE
     Indication: Product used for unknown indication
     Dosage: LP 150MG, 4 ? 6 FOIS/J
     Route: 048
     Dates: start: 2022, end: 2023
  8. ZOLPIDEM [Suspect]
     Active Substance: ZOLPIDEM TARTRATE
     Indication: Product used for unknown indication
     Dosage: 10.000MG QD
     Route: 048
     Dates: start: 2023, end: 2024
  9. ZOLPIDEM [Suspect]
     Active Substance: ZOLPIDEM TARTRATE
     Dosage: DE 2 ? 5 COMPRIM?S PAR JOUR
     Route: 048
     Dates: start: 2024

REACTIONS (1)
  - Drug use disorder [Not Recovered/Not Resolved]

NARRATIVE: CASE EVENT DATE: 20240101
